FAERS Safety Report 16704803 (Version 1)
Quarter: 2019Q3

REPORT INFORMATION
  Report Type: Spontaneous
  Country: US (occurrence: US)
  Receive Date: 20190814
  Receipt Date: 20190814
  Transmission Date: 20191004
  Serious: No
  Sender: FDA-Public Use
  Company Number: US-MANNKIND CORPORATION-2018MK000349

PATIENT
  Age: 12 Year
  Sex: Female

DRUGS (4)
  1. METFORMIN [Concomitant]
     Active Substance: METFORMIN HYDROCHLORIDE
     Indication: DIABETES MELLITUS
     Route: 048
  2. AFREZZA [Suspect]
     Active Substance: INSULIN HUMAN
     Indication: WOLFRAM SYNDROME
     Dates: start: 201801
  3. AFREZZA [Suspect]
     Active Substance: INSULIN HUMAN
     Dates: start: 201801
  4. AFREZZA [Suspect]
     Active Substance: INSULIN HUMAN
     Dates: start: 201801

REACTIONS (4)
  - Blood glucose increased [Recovered/Resolved]
  - Intentional product use issue [Not Recovered/Not Resolved]
  - Off label use [Not Recovered/Not Resolved]
  - Drug ineffective [Recovered/Resolved]

NARRATIVE: CASE EVENT DATE: 201801
